FAERS Safety Report 24819515 (Version 1)
Quarter: 2025Q1

REPORT INFORMATION
  Report Type: Spontaneous
  Country: US (occurrence: US)
  Receive Date: 20250108
  Receipt Date: 20250108
  Transmission Date: 20250408
  Serious: Yes (Life-Threatening, Hospitalization)
  Sender: DR REDDYS
  Company Number: None

PATIENT
  Age: 83 Year
  Sex: Female

DRUGS (4)
  1. MELOXICAM [Suspect]
     Active Substance: MELOXICAM
     Indication: Osteoarthritis
  2. ASPIRIN [Suspect]
     Active Substance: ASPIRIN
     Indication: Osteoarthritis
  3. LISINOPRIL [Concomitant]
     Active Substance: LISINOPRIL
     Indication: Product used for unknown indication
  4. DONEPEZIL [Concomitant]
     Active Substance: DONEPEZIL
     Indication: Product used for unknown indication

REACTIONS (9)
  - Duodenal ulcer perforation [Recovering/Resolving]
  - Metabolic acidosis [Recovering/Resolving]
  - Cardiac arrest [Recovered/Resolved]
  - Hyponatraemia [Recovering/Resolving]
  - Lipase increased [Recovering/Resolving]
  - Leukopenia [Recovering/Resolving]
  - Sinus tachycardia [Recovering/Resolving]
  - Acute kidney injury [Recovering/Resolving]
  - Hypoxia [Recovering/Resolving]
